FAERS Safety Report 25342050 (Version 2)
Quarter: 2025Q3

REPORT INFORMATION
  Report Type: Spontaneous
  Country: EU (occurrence: EU)
  Receive Date: 20250521
  Receipt Date: 20250722
  Transmission Date: 20251020
  Serious: Yes (Hospitalization)
  Sender: TEVA
  Company Number: None

PATIENT
  Age: 50 Year
  Sex: Female
  Weight: 58 kg

DRUGS (5)
  1. ESOMEPRAZOLE [Suspect]
     Active Substance: ESOMEPRAZOLE
     Indication: Gastric ulcer
     Dosage: 20 MG/DAY, 1FP
     Route: 048
     Dates: start: 20250117, end: 20250312
  2. CLINDAMYCIN HYDROCHLORIDE [Suspect]
     Active Substance: CLINDAMYCIN HYDROCHLORIDE
     Indication: Antibiotic therapy
     Dosage: 300 MG/ 3 TIMES A DAY
     Route: 048
     Dates: start: 20250212, end: 20250312
  3. XGEVA [Suspect]
     Active Substance: DENOSUMAB
     Indication: Prophylaxis
     Dosage: 120 MG/MONTH, 1FP
     Route: 058
     Dates: start: 20250115, end: 20250217
  4. LEVOFLOXACIN [Suspect]
     Active Substance: LEVOFLOXACIN
     Indication: Antibiotic therapy
     Dosage: 750 MG/DAY, 1FP
     Route: 048
     Dates: start: 20250212, end: 20250313
  5. KISQALI [Suspect]
     Active Substance: RIBOCICLIB SUCCINATE
     Indication: Breast cancer
     Dosage: 600 MG/DAY, 1FP
     Route: 048
     Dates: start: 20250213, end: 20250313

REACTIONS (1)
  - Drug reaction with eosinophilia and systemic symptoms [Recovering/Resolving]

NARRATIVE: CASE EVENT DATE: 20250304
